FAERS Safety Report 18441498 (Version 1)
Quarter: 2020Q4

REPORT INFORMATION
  Report Type: Spontaneous
  Country: US (occurrence: US)
  Receive Date: 20201029
  Receipt Date: 20201029
  Transmission Date: 20210114
  Serious: Yes (Other)
  Sender: FDA-Public Use
  Company Number: None

PATIENT
  Sex: Male

DRUGS (1)
  1. LOPERAMIDE HYDROCHLORIDE TABLETS, 2MG [Suspect]
     Active Substance: LOPERAMIDE HYDROCHLORIDE

REACTIONS (3)
  - Product packaging difficult to open [None]
  - Anal incontinence [None]
  - Drug dependence [None]

NARRATIVE: CASE EVENT DATE: 20201028
